FAERS Safety Report 13815591 (Version 1)
Quarter: 2017Q3

REPORT INFORMATION
  Report Type: Other
  Country: GB (occurrence: GB)
  Receive Date: 20170731
  Receipt Date: 20170731
  Transmission Date: 20171127
  Serious: Yes (Hospitalization, Other)
  Sender: FDA-Public Use
  Company Number: GB-COVIS PHARMA B.V.-2017COV00092

PATIENT
  Age: 86 Year
  Sex: Female
  Weight: 53 kg

DRUGS (13)
  1. OMEPRAZOLE MAGNESIUM. [Suspect]
     Active Substance: OMEPRAZOLE MAGNESIUM
     Dosage: 20 MG, UNK
     Route: 048
     Dates: start: 20140601, end: 20170704
  2. METOCLOPRAMIDE HYDROCHLORIDE. [Concomitant]
     Active Substance: METOCLOPRAMIDE HYDROCHLORIDE
  3. CARVEDILOL. [Concomitant]
     Active Substance: CARVEDILOL
  4. OXYCODONE HYDROCHLORIDE. [Concomitant]
     Active Substance: OXYCODONE HYDROCHLORIDE
  5. FENTANYL. [Concomitant]
     Active Substance: FENTANYL
  6. PARACETAMOL [Concomitant]
     Active Substance: ACETAMINOPHEN
  7. METRONIDAZOLE. [Suspect]
     Active Substance: METRONIDAZOLE
     Indication: BACTERIAL SEPSIS
     Dosage: 500 MG, 3X/DAY
     Route: 042
     Dates: start: 20170629, end: 20170702
  8. CYCLIZINE [Concomitant]
     Active Substance: CYCLIZINE
  9. ONDANSETRON [Concomitant]
     Active Substance: ONDANSETRON
  10. DALTEPARIN [Concomitant]
     Active Substance: DALTEPARIN
  11. FUROSEMIDE. [Concomitant]
     Active Substance: FUROSEMIDE
  12. ALFACALCIDOL [Concomitant]
     Active Substance: ALFACALCIDOL
  13. FERROUS SULFATE. [Concomitant]
     Active Substance: FERROUS SULFATE

REACTIONS (2)
  - Pancreatitis acute [Not Recovered/Not Resolved]
  - Bacterial sepsis [Unknown]

NARRATIVE: CASE EVENT DATE: 201706
